FAERS Safety Report 5965952-7 (Version None)
Quarter: 2008Q4

REPORT INFORMATION
  Report Type: 
  Country: None (occurrence: None)
  Receive Date: 20081125
  Receipt Date: 20081113
  Transmission Date: 20090506
  Serious: Yes (Death, Hospitalization)
  Sender: FDA-Public Use
  Company Number: ES-ELI_LILLY_AND_COMPANY-ES200811003501

PATIENT
  Age: 75 Year
  Sex: Female

DRUGS (3)
  1. FORTEO [Suspect]
     Indication: OSTEOPOROSIS
     Dosage: 20 UG, UNKNOWN
     Route: 058
     Dates: start: 20070501
  2. MOTILIUM [Concomitant]
     Dosage: UNK, UNKNOWN
     Route: 065
  3. ALDACTONE [Concomitant]
     Dosage: UNK, UNKNOWN
     Route: 065

REACTIONS (5)
  - CARDIAC FAILURE [None]
  - MULTI-ORGAN FAILURE [None]
  - NASOPHARYNGITIS [None]
  - PULMONARY OEDEMA [None]
  - RENAL FAILURE [None]
